FAERS Safety Report 26054720 (Version 1)
Quarter: 2025Q4

REPORT INFORMATION
  Report Type: Spontaneous
  Country: US (occurrence: US)
  Receive Date: 20251117
  Receipt Date: 20251117
  Transmission Date: 20260117
  Serious: Yes (Other)
  Sender: NOVO NORDISK
  Company Number: US-NOVOPROD-1561575

PATIENT
  Age: 59 Year
  Sex: Female

DRUGS (2)
  1. TRESIBA [Suspect]
     Active Substance: INSULIN DEGLUDEC
     Indication: Type 2 diabetes mellitus
     Dosage: 92 IU QD
     Route: 058
  2. HARVONI [Concomitant]
     Active Substance: LEDIPASVIR\SOFOSBUVIR
     Indication: Hepatitis
     Dosage: UNK
     Dates: start: 2017

REACTIONS (6)
  - Cholelithiasis [Unknown]
  - Liver disorder [Unknown]
  - Blindness [Unknown]
  - Abdominal distension [Unknown]
  - Splenomegaly [Unknown]
  - Weight increased [Unknown]
